FAERS Safety Report 7210037-5 (Version None)
Quarter: 2011Q1

REPORT INFORMATION
  Report Type: 
  Country: None (occurrence: None)
  Receive Date: 20110105
  Receipt Date: 20101231
  Transmission Date: 20110831
  Serious: No
  Sender: FDA-Public Use
  Company Number: US-BIOGENIDEC-2011BI000122

PATIENT
  Age: 44 Year
  Sex: Female

DRUGS (4)
  1. TYSABRI [Suspect]
     Indication: MULTIPLE SCLEROSIS
     Route: 042
     Dates: start: 20101018
  2. TYSABRI [Suspect]
     Route: 042
     Dates: start: 20081223, end: 20100322
  3. UNKNOWN MEDICATION (NOS) [Concomitant]
     Indication: PREMEDICATION
  4. TYLENOL (CAPLET) [Concomitant]
     Indication: PREMEDICATION

REACTIONS (5)
  - CONJUNCTIVITIS INFECTIVE [None]
  - AMENORRHOEA [None]
  - POLYMENORRHOEA [None]
  - ABDOMINAL DISCOMFORT [None]
  - AGEUSIA [None]
